FAERS Safety Report 19690345 (Version 1)
Quarter: 2021Q3

REPORT INFORMATION
  Report Type: Spontaneous
  Country: US (occurrence: US)
  Receive Date: 20210812
  Receipt Date: 20210812
  Transmission Date: 20211014
  Serious: No
  Sender: FDA-Public Use
  Company Number: US-PFIZER INC-2021717122

PATIENT
  Age: 57 Year
  Sex: Female
  Weight: 57.14 kg

DRUGS (4)
  1. LETROZOLE. [Concomitant]
     Active Substance: LETROZOLE
  2. ZOLADEX [Concomitant]
     Active Substance: GOSERELIN ACETATE
  3. IBRANCE [Suspect]
     Active Substance: PALBOCICLIB
     Indication: BREAST CANCER
     Dosage: 125 MG, CYCLIC (DAILY FOR 21 DAYS)
     Route: 048
     Dates: start: 20200605
  4. XGEVA [Concomitant]
     Active Substance: DENOSUMAB

REACTIONS (1)
  - White blood cell count decreased [Unknown]
